FAERS Safety Report 5151737-0 (Version None)
Quarter: 2006Q4

REPORT INFORMATION
  Report Type: 
  Country: None (occurrence: None)
  Receive Date: 20061107
  Receipt Date: 20061023
  Transmission Date: 20070319
  Serious: Yes (Hospitalization)
  Sender: FDA-Public Use
  Company Number: BR200610004656

PATIENT
  Age: 79 Year
  Sex: Female

DRUGS (7)
  1. FORTEO [Suspect]
     Indication: OSTEOPOROSIS
     Dosage: 20 UG DAILY (1/D) SUBCUTANEOUS
     Route: 058
     Dates: start: 20040101
  2. FORTEO [Concomitant]
  3. ARAVA [Concomitant]
  4. TENOXICAM [Concomitant]
  5. RANITIDINE HYDROCHLORIDE [Concomitant]
  6. SERETIDE DISKUS/FIN/ (FLUTICASONE PROPIONATE, SALMETEROL XINAFOATE) [Concomitant]
  7. CALCIUM CARBONATE [Concomitant]

REACTIONS (1)
  - INTESTINAL HAEMORRHAGE [None]
